FAERS Safety Report 4398120-3 (Version None)
Quarter: 2004Q3

REPORT INFORMATION
  Report Type: 
  Country: None (occurrence: None)
  Receive Date: 20040713
  Receipt Date: 20040628
  Transmission Date: 20050211
  Serious: Yes (Hospitalization)
  Sender: FDA-Public Use
  Company Number: DSA_24609_2004

PATIENT
  Age: 88 Year
  Sex: Female

DRUGS (6)
  1. ISOCEF [Suspect]
     Indication: LUNG DISORDER
     Dosage: 400 MG QD PO
     Route: 048
     Dates: start: 20040429, end: 20040429
  2. LASIX [Concomitant]
  3. LORANS [Concomitant]
  4. SEREVENT [Concomitant]
  5. LANSOPRAZOLE [Concomitant]
  6. THEOPHYLLINE [Concomitant]

REACTIONS (4)
  - LEUKOCYTOSIS [None]
  - NEUTROPHILIA [None]
  - RASH MACULO-PAPULAR [None]
  - TOXIC SKIN ERUPTION [None]
